FAERS Safety Report 9203832 (Version 1)
Quarter: 2013Q1

REPORT INFORMATION
  Report Type: Spontaneous
  Country: US (occurrence: None)
  Receive Date: 20120709
  Receipt Date: 20120709
  Transmission Date: 20140127
  Serious: No
  Sender: FDA-Public Use
  Company Number: 2012HGS-003541

PATIENT
  Age: 22 Year
  Sex: Female
  Weight: 54.43 kg

DRUGS (5)
  1. BENLYSTA [Suspect]
     Indication: SYSTEMIC LUPUS ERYTHEMATOSUS
     Dosage: 1 IN 28 D
     Route: 041
     Dates: start: 20120411
  2. METHOTREXATE (METHOTREXATE) (METHOTREXATE) [Concomitant]
  3. LEUCOVORIN (FOLINIC ACID) (FOLINIC ACID) [Concomitant]
  4. PLAQUENIL (HYDROXYCHLOROQUINE PHOSPHATE) (HYDROXYCHLOROQUINE PHOSPHATE) [Concomitant]
  5. IRON (IRON) (IRON) [Concomitant]

REACTIONS (2)
  - Vomiting [None]
  - Back pain [None]
